FAERS Safety Report 5024319-9 (Version None)
Quarter: 2006Q2

REPORT INFORMATION
  Report Type: 
  Country: None (occurrence: None)
  Receive Date: 20060608
  Receipt Date: 20060608
  Transmission Date: 20061013
  Serious: Yes (Life-Threatening, Hospitalization, Disabling, Other)
  Sender: FDA-Public Use
  Company Number: None

PATIENT
  Age: 71 Year
  Weight: 69.8539 kg

DRUGS (2)
  1. ALEVE [Suspect]
     Indication: INTERVERTEBRAL DISC DISORDER
     Dosage: 3 PILLS 12 HR INTERVALS PO
     Route: 048
     Dates: start: 20060522, end: 20060524
  2. ALEVE [Suspect]
     Indication: PAIN
     Dosage: 3 PILLS 12 HR INTERVALS PO
     Route: 048
     Dates: start: 20060522, end: 20060524

REACTIONS (2)
  - GASTROINTESTINAL ULCER HAEMORRHAGE [None]
  - HYPOTENSION [None]
